FAERS Safety Report 20696169 (Version 4)
Quarter: 2022Q3

REPORT INFORMATION
  Report Type: Report from Study
  Country: US (occurrence: US)
  Receive Date: 20220411
  Receipt Date: 20220829
  Transmission Date: 20221027
  Serious: No
  Sender: FDA-Public Use
  Company Number: US-NOVARTISTESTPH-NVSC2022US081849

PATIENT
  Sex: Female

DRUGS (1)
  1. KESIMPTA [Suspect]
     Active Substance: OFATUMUMAB
     Indication: Relapsing multiple sclerosis
     Dosage: 20 MG, QOD
     Route: 058
     Dates: start: 20220403

REACTIONS (5)
  - Bone pain [Recovering/Resolving]
  - Influenza like illness [Unknown]
  - Cough [Unknown]
  - Chest discomfort [Unknown]
  - Nausea [Recovering/Resolving]
